FAERS Safety Report 4594998-9 (Version None)
Quarter: 2005Q1

REPORT INFORMATION
  Report Type: 
  Country: None (occurrence: None)
  Receive Date: 20050223
  Receipt Date: 20050210
  Transmission Date: 20050727
  Serious: Yes (Life-Threatening, Hospitalization, Other)
  Sender: FDA-Public Use
  Company Number: 2004097617

PATIENT
  Age: 48 Year
  Sex: Female
  Weight: 53 kg

DRUGS (2)
  1. ZOLOFT [Suspect]
     Indication: DEPRESSION
     Dosage: 50 MG, 1 IN 1 D, ORAL
     Route: 048
     Dates: start: 20031220
  2. ZOLOFT [Suspect]
     Indication: DEPRESSION
     Dosage: 50 MG, 1 IN 1 D, ORAL
     Route: 048
     Dates: start: 20031220

REACTIONS (4)
  - CARDIAC ARREST [None]
  - CARDIAC FAILURE [None]
  - FEELING ABNORMAL [None]
  - PULMONARY EMBOLISM [None]
